FAERS Safety Report 18813687 (Version 1)
Quarter: 2021Q1

REPORT INFORMATION
  Report Type: Spontaneous
  Country: BR (occurrence: BR)
  Receive Date: 20210201
  Receipt Date: 20210201
  Transmission Date: 20210419
  Serious: Yes (Death, Other)
  Sender: FDA-Public Use
  Company Number: BR-LUPIN PHARMACEUTICALS INC.-2021-01153

PATIENT
  Sex: Male
  Weight: 2.75 kg

DRUGS (3)
  1. CARVEDILOL. [Suspect]
     Active Substance: CARVEDILOL
     Indication: MITRAL VALVE DISEASE
     Dosage: 3.125 MILLIGRAM?TWO TIMES A DAY (12/12H)
     Route: 064
  2. BENZATHINE PENICILLIN G [Suspect]
     Active Substance: PENICILLIN G BENZATHINE
     Indication: MITRAL VALVE DISEASE
     Dosage: 1.200 INTERNATIONAL UNIT?EVERY 21 DAYS
     Route: 064
  3. ASPIRIN. [Suspect]
     Active Substance: ASPIRIN
     Indication: MITRAL VALVE DISEASE
     Dosage: 100 MILLIGRAM, QD
     Route: 064

REACTIONS (4)
  - Bradycardia [Recovered/Resolved]
  - Foetal exposure during pregnancy [Unknown]
  - Foetal distress syndrome [Recovered/Resolved]
  - Premature baby [Unknown]
